FAERS Safety Report 9115387 (Version 1)
Quarter: 2013Q1

REPORT INFORMATION
  Report Type: Spontaneous
  Country: US (occurrence: None)
  Receive Date: 20130129
  Receipt Date: 20130129
  Transmission Date: 20140127
  Serious: Yes (Hospitalization)
  Sender: FDA-Public Use
  Company Number: 144418

PATIENT
  Age: 56 Year
  Sex: Female

DRUGS (1)
  1. DOXYCYCLINE FOR INJ. USP 100MG-BEDFORD LABS, INC. [Suspect]
     Indication: CELLULITIS

REACTIONS (2)
  - Hallucination, visual [None]
  - Substance-induced psychotic disorder [None]
